FAERS Safety Report 7743616-7 (Version None)
Quarter: 2011Q3

REPORT INFORMATION
  Report Type: 
  Country: None (occurrence: None)
  Receive Date: 20110912
  Receipt Date: 20110907
  Transmission Date: 20111222
  Serious: Yes (Hospitalization)
  Sender: FDA-Public Use
  Company Number: DE-JNJFOC-20110703023

PATIENT
  Age: 57 Year
  Sex: Male
  Weight: 121 kg

DRUGS (3)
  1. USTEKINUMAB [Suspect]
     Indication: PSORIASIS
     Route: 058
     Dates: start: 20100708
  2. METHOTREXATE [Suspect]
     Indication: PSORIASIS
  3. ENALAPRIL MALEATE [Concomitant]
     Route: 048
     Dates: start: 20100101

REACTIONS (1)
  - TRANSIENT ISCHAEMIC ATTACK [None]
